FAERS Safety Report 7574367-X (Version None)
Quarter: 2011Q2

REPORT INFORMATION
  Report Type: 
  Country: None (occurrence: None)
  Receive Date: 20110627
  Receipt Date: 20110621
  Transmission Date: 20111010
  Serious: Yes (Hospitalization)
  Sender: FDA-Public Use
  Company Number: IT-BRISTOL-MYERS SQUIBB COMPANY-15845936

PATIENT
  Age: 51 Year
  Sex: Female

DRUGS (2)
  1. ABILIFY [Suspect]
     Indication: PSYCHOTIC DISORDER
     Dosage: INTER ON:31MAY2011
     Route: 048
     Dates: start: 20110524, end: 20110531
  2. DIFLUCAN [Concomitant]
     Dosage: DIFLUCAN 50MG CAPS, 1 UNIT VIA ORAL
     Route: 048
     Dates: start: 20110516, end: 20110531

REACTIONS (3)
  - TRISMUS [None]
  - LOSS OF CONSCIOUSNESS [None]
  - INCONTINENCE [None]
